FAERS Safety Report 9237046 (Version 1)
Quarter: 2013Q2

REPORT INFORMATION
  Report Type: Spontaneous
  Country: US (occurrence: US)
  Receive Date: 20130417
  Receipt Date: 20130417
  Transmission Date: 20140414
  Serious: Yes (Other)
  Sender: FDA-Public Use
  Company Number: US-BAYER-2013-048669

PATIENT
  Age: 30 Year
  Sex: Female

DRUGS (1)
  1. BETASERON [Suspect]
     Indication: MULTIPLE SCLEROSIS
     Dosage: 0.25 MG, QOD
     Route: 058
     Dates: start: 201302

REACTIONS (7)
  - Gait disturbance [None]
  - Multiple sclerosis relapse [None]
  - Hypoaesthesia [None]
  - Headache [None]
  - Abdominal pain upper [None]
  - Dyspepsia [None]
  - Asthenia [None]
